FAERS Safety Report 10050860 (Version 2)
Quarter: 2014Q2

REPORT INFORMATION
  Report Type: Spontaneous
  Country: JP (occurrence: JP)
  Receive Date: 20140401
  Receipt Date: 20140429
  Transmission Date: 20141212
  Serious: Yes (Other)
  Sender: FDA-Public Use
  Company Number: JP-JNJFOC-20140318687

PATIENT
  Age: 63 Year
  Sex: Male

DRUGS (4)
  1. SOVRIAD [Suspect]
     Indication: CHRONIC HEPATITIS C
     Route: 048
     Dates: start: 20131206, end: 20140228
  2. REBETOL [Suspect]
     Indication: CHRONIC HEPATITIS C
     Route: 048
     Dates: start: 20131206, end: 201403
  3. REBETOL [Suspect]
     Indication: CHRONIC HEPATITIS C
     Route: 048
     Dates: start: 201403
  4. PEGINTRON [Concomitant]
     Indication: CHRONIC HEPATITIS C
     Route: 058
     Dates: start: 20131206

REACTIONS (2)
  - Anaemia [Recovered/Resolved]
  - Off label use [Recovered/Resolved]
